FAERS Safety Report 24325556 (Version 1)
Quarter: 2024Q3

REPORT INFORMATION
  Report Type: Report from Study
  Country: US (occurrence: US)
  Receive Date: 20240917
  Receipt Date: 20240917
  Transmission Date: 20241016
  Serious: Yes (Other)
  Sender: ABBVIE
  Company Number: US-ABBVIE-5917655

PATIENT
  Sex: Female

DRUGS (11)
  1. HUMIRA [Suspect]
     Active Substance: ADALIMUMAB
     Indication: Rheumatoid arthritis
     Dosage: FORM STRENGTH: 40 MILLIGRAM, FOR BRONCHITIS DISCONTINUED
     Route: 058
     Dates: start: 20220203
  2. HUMIRA [Suspect]
     Active Substance: ADALIMUMAB
     Dosage: FORM STRENGTH: 40 MILLIGRAM, FOR GUM INFECTION DISCONTINUED
     Route: 058
     Dates: start: 2024, end: 2024
  3. HUMIRA [Suspect]
     Active Substance: ADALIMUMAB
     Dosage: FORM STRENGTH: 40 MILLIGRAM
     Route: 058
     Dates: start: 2024
  4. IRON [Concomitant]
     Active Substance: IRON
     Indication: Anaemia
     Dosage: IRON DRIP
  5. NEURIVAS [Concomitant]
     Indication: Cerebral disorder
  6. METOPROLOL [Concomitant]
     Active Substance: METOPROLOL
     Indication: Blood pressure measurement
     Dosage: FORM STRENGTH WAS 25 MILLIGRAMS
  7. ESTRADIOL [Concomitant]
     Active Substance: ESTRADIOL
     Indication: Product used for unknown indication
  8. TRAZODONE [Concomitant]
     Active Substance: TRAZODONE HYDROCHLORIDE
     Indication: Sleep disorder
     Dosage: FREQUENCY TEXT: AS NEEDED?FORM STRENGTH WAS 50 MILLIGRAMS
  9. XANAX [Concomitant]
     Active Substance: ALPRAZOLAM
     Indication: Faeces hard
     Dosage: FREQUENCY TEXT: PERIODICALLY
  10. RISEDRONATE SODIUM [Concomitant]
     Active Substance: RISEDRONATE SODIUM
     Indication: Bone disorder
     Dosage: FORM STRENGTH: 150 MILLIGRAMS
  11. LEVOTHYROXINE [Concomitant]
     Active Substance: LEVOTHYROXINE\LEVOTHYROXINE SODIUM
     Indication: Thyroidectomy
     Dosage: FORM STRENGTH: 88 MICROGRAMS

REACTIONS (6)
  - Intestinal perforation [Not Recovered/Not Resolved]
  - Faeces discoloured [Not Recovered/Not Resolved]
  - Pulmonary mass [Unknown]
  - Gingivitis [Recovered/Resolved]
  - Bronchitis [Recovered/Resolved]
  - Sacral pain [Unknown]

NARRATIVE: CASE EVENT DATE: 20240101
